FAERS Safety Report 18058727 (Version 1)
Quarter: 2020Q3

REPORT INFORMATION
  Report Type: Spontaneous
  Country: US (occurrence: US)
  Receive Date: 20200722
  Receipt Date: 20200722
  Transmission Date: 20201103
  Serious: Yes (Hospitalization)
  Sender: FDA-Public Use
  Company Number: None

PATIENT
  Age: 31 Year
  Sex: Female

DRUGS (1)
  1. OPSUMIT [Suspect]
     Active Substance: MACITENTAN
     Indication: COR PULMONALE CHRONIC
     Route: 048
     Dates: start: 20200224

REACTIONS (2)
  - Hypoaesthesia [None]
  - Metabolic acidosis [None]

NARRATIVE: CASE EVENT DATE: 20200720
